FAERS Safety Report 22873199 (Version 5)
Quarter: 2023Q4

REPORT INFORMATION
  Report Type: Spontaneous
  Country: US (occurrence: US)
  Receive Date: 20230828
  Receipt Date: 20231009
  Transmission Date: 20240110
  Serious: Yes (Life-Threatening, Hospitalization, Other)
  Sender: FDA-Public Use
  Company Number: US-PFIZER INC-PV202300145147

PATIENT
  Age: 10 Year
  Sex: Male
  Weight: 68 kg

DRUGS (10)
  1. DOXEPIN HCL [Interacting]
     Active Substance: DOXEPIN HYDROCHLORIDE
     Indication: Insomnia
     Dosage: 1.1 MG/KG
     Dates: start: 20210108, end: 20210623
  2. DOXEPIN HCL [Interacting]
     Active Substance: DOXEPIN HYDROCHLORIDE
     Indication: Post-traumatic stress disorder
     Dosage: 2.21 MG/KG
     Dates: start: 20210623, end: 20211015
  3. DOXEPIN HCL [Interacting]
     Active Substance: DOXEPIN HYDROCHLORIDE
     Dosage: 2.94 MG/KG
     Dates: start: 20211015, end: 202204
  4. DOXEPIN HCL [Interacting]
     Active Substance: DOXEPIN HYDROCHLORIDE
     Dosage: DOSE WAS INCREASED TO 300 MG NIGHTLY (4.41 MG/KG)
     Dates: start: 202204, end: 202204
  5. CLOBAZAM [Interacting]
     Active Substance: CLOBAZAM
     Indication: Epilepsy
     Dosage: 10 MG, 2X/DAY
     Dates: start: 20220416, end: 20220418
  6. TOPIRAMATE [Interacting]
     Active Substance: TOPIRAMATE
     Indication: Epilepsy
     Dosage: 200 MG, 2X/DAY
     Dates: start: 20220226
  7. TOPIRAMATE [Interacting]
     Active Substance: TOPIRAMATE
     Dosage: 150 MG, 2X/DAY
  8. LEVETIRACETAM [Concomitant]
     Active Substance: LEVETIRACETAM
     Indication: Epilepsy
     Dosage: 1000 MG, 2X/DAY
     Dates: start: 20211106
  9. VALPROIC ACID [Concomitant]
     Active Substance: VALPROIC ACID
     Indication: Epilepsy
     Dosage: 500 MG, DAILY
  10. GUANFACINE [Concomitant]
     Active Substance: GUANFACINE
     Indication: Attention deficit hyperactivity disorder
     Dosage: 3 MG, DAILY

REACTIONS (8)
  - Prescribed overdose [Unknown]
  - Drug interaction [Unknown]
  - Toxicity to various agents [Recovered/Resolved]
  - Confusional state [Recovered/Resolved]
  - Ataxia [Recovered/Resolved]
  - Seizure [Recovered/Resolved]
  - Drug level above therapeutic [Recovering/Resolving]
  - Off label use [Unknown]
